FAERS Safety Report 8321942-0 (Version None)
Quarter: 2012Q2

REPORT INFORMATION
  Report Type: 
  Country: None (occurrence: None)
  Receive Date: 20120430
  Receipt Date: 20120423
  Transmission Date: 20120825
  Serious: Yes (Death)
  Sender: FDA-Public Use
  Company Number: US-ASTRAZENECA-2012SE26366

PATIENT
  Age: 61 Year
  Sex: Male

DRUGS (2)
  1. UNSPECIFIED [Concomitant]
  2. NEXIUM [Suspect]
     Indication: GASTROOESOPHAGEAL REFLUX DISEASE
     Route: 048
     Dates: start: 19970101, end: 20120413

REACTIONS (1)
  - PROSTATE CANCER METASTATIC [None]
